FAERS Safety Report 7544435-7 (Version None)
Quarter: 2011Q2

REPORT INFORMATION
  Report Type: 
  Country: None (occurrence: None)
  Receive Date: 20110613
  Receipt Date: 20090622
  Transmission Date: 20111010
  Serious: Yes (Death)
  Sender: FDA-Public Use
  Company Number: PHHY2008JP25099

PATIENT
  Sex: Female

DRUGS (7)
  1. ZOLEDRONIC ACID [Suspect]
     Indication: RENAL CANCER
     Dosage: 3.3 MG, (SINGLT DOSE)
     Route: 042
     Dates: start: 20071115, end: 20071115
  2. OXYCONTIN [Concomitant]
     Dosage: 40 MG/DAY
     Route: 048
     Dates: start: 20071112
  3. FENTANYL [Concomitant]
     Dosage: 5.0 MG/DAY
     Route: 061
  4. FENTANYL [Concomitant]
     Dosage: 7.5 MG/DAY
     Route: 061
  5. FENTANYL [Concomitant]
     Dosage: 10 MG/DAY
     Route: 048
     Dates: end: 20071211
  6. OXYCONTIN [Concomitant]
     Dosage: 60 MG/DAY
     Route: 048
     Dates: end: 20071118
  7. FENTANYL [Concomitant]
     Dosage: 2.5 MG/DAY
     Route: 061
     Dates: start: 20071119

REACTIONS (3)
  - NEOPLASM MALIGNANT [None]
  - HYPOCALCAEMIA [None]
  - CONDITION AGGRAVATED [None]
